FAERS Safety Report 6659772-8 (Version None)
Quarter: 2010Q1

REPORT INFORMATION
  Report Type: 
  Country: None (occurrence: None)
  Receive Date: 20100330
  Receipt Date: 20100325
  Transmission Date: 20100710
  Serious: Yes (Hospitalization)
  Sender: FDA-Public Use
  Company Number: FR-MERCK-1003FRA00094

PATIENT
  Age: 64 Year
  Sex: Male

DRUGS (5)
  1. ZOCOR [Suspect]
     Indication: HYPERCHOLESTEROLAEMIA
     Route: 048
     Dates: end: 20010814
  2. ZOCOR [Suspect]
     Route: 048
     Dates: start: 20020211, end: 20030206
  3. TENORDATE [Suspect]
     Route: 048
  4. ALLOPURINOL [Suspect]
     Route: 048
  5. TAREG [Suspect]
     Route: 048

REACTIONS (1)
  - MUSCLE NECROSIS [None]
